FAERS Safety Report 23806712 (Version 2)
Quarter: 2024Q2

REPORT INFORMATION
  Report Type: Spontaneous
  Country: RO (occurrence: RO)
  Receive Date: 20240502
  Receipt Date: 20240513
  Transmission Date: 20240716
  Serious: No
  Sender: FDA-Public Use
  Company Number: RO-MYLANLABS-2024M1034335

PATIENT
  Age: 20 Year
  Sex: Female

DRUGS (23)
  1. OLANZAPINE [Suspect]
     Active Substance: OLANZAPINE
     Indication: Psychotic symptom
     Dosage: 5 MILLIGRAM, QD (5MG/DAY)
     Route: 065
  2. OLANZAPINE [Suspect]
     Active Substance: OLANZAPINE
     Indication: Perinatal depression
     Dosage: OLANZAPINE GRADUALLY DECREASED
     Route: 065
  3. OLANZAPINE [Suspect]
     Active Substance: OLANZAPINE
     Indication: Psychotic disorder
     Dosage: 1 DOSAGE FORM, QD (1TABLET/DAY FOR A WEEK)
     Route: 065
  4. OLANZAPINE [Suspect]
     Active Substance: OLANZAPINE
     Dosage: 15 MILLIGRAM, QD (GRADUALLY INCREASING THE DOSE)
     Route: 065
  5. CLOZAPINE [Suspect]
     Active Substance: CLOZAPINE
     Indication: Product used for unknown indication
     Dosage: 1 DOSAGE FORM, QD (1 TABLET/DAY)
     Route: 065
  6. QUETIAPINE [Suspect]
     Active Substance: QUETIAPINE
     Indication: Product used for unknown indication
     Dosage: UNK
     Route: 048
     Dates: start: 2023, end: 2023
  7. VALPROIC ACID [Suspect]
     Active Substance: VALPROIC ACID
     Indication: Product used for unknown indication
     Dosage: 3 DOSAGE FORM, QD (3 TABLETS/DAY)
     Route: 065
  8. VALPROIC ACID [Suspect]
     Active Substance: VALPROIC ACID
     Dosage: 4 DOSAGE FORM, QD (FOUR TABLETS/DAY)
     Route: 065
  9. VALPROIC ACID [Suspect]
     Active Substance: VALPROIC ACID
     Dosage: 5 MILLILITER, QD (GRADUALLY REACHING)
     Route: 065
  10. DIAZEPAM [Suspect]
     Active Substance: DIAZEPAM
     Indication: Product used for unknown indication
     Dosage: UNK
     Route: 048
     Dates: start: 2023, end: 2023
  11. RISPERIDONE [Suspect]
     Active Substance: RISPERIDONE
     Indication: Product used for unknown indication
     Dosage: 6 MILLILITER, QD (1MG/ML (6ML/DAY))
     Route: 065
  12. RISPERIDONE [Suspect]
     Active Substance: RISPERIDONE
     Dosage: 2 MILLILITER, QD (1MG/ML (2ML/DAY))
     Route: 065
  13. CLONAZEPAM [Suspect]
     Active Substance: CLONAZEPAM
     Indication: Psychotic symptom
     Dosage: 1 DOSAGE FORM, QD
     Route: 065
  14. CLONAZEPAM [Suspect]
     Active Substance: CLONAZEPAM
     Indication: Suicide attempt
     Dosage: 2 MILLIGRAM, QD (2MG (1/2TABLET/DAY))
     Route: 065
  15. TRAZODONE [Suspect]
     Active Substance: TRAZODONE HYDROCHLORIDE
     Indication: Product used for unknown indication
     Dosage: 1 DOSAGE FORM, QD
     Route: 065
  16. TRIHEXYPHENIDYL [Suspect]
     Active Substance: TRIHEXYPHENIDYL
     Indication: Product used for unknown indication
     Dosage: 1 DOSAGE FORM, QD
     Route: 065
  17. VORTIOXETINE [Concomitant]
     Active Substance: VORTIOXETINE
     Dosage: 10 MILLIGRAM, QD (1 TABLET/DAY)
     Route: 065
  18. VORTIOXETINE [Concomitant]
     Active Substance: VORTIOXETINE
     Dosage: 1 DOSAGE FORM, QD
     Route: 065
  19. CLOMIPRAMINE [Concomitant]
     Active Substance: CLOMIPRAMINE
     Indication: Depression
     Dosage: 1 DOSAGE FORM, QD
     Route: 065
  20. CLOMIPRAMINE [Concomitant]
     Active Substance: CLOMIPRAMINE
     Dosage: 3 DOSAGE FORM, QD (3 TABLETS/DAY)
     Route: 065
  21. CARIPRAZINE [Concomitant]
     Active Substance: CARIPRAZINE
     Indication: Psychotic disorder
     Dosage: 1.5 MILLIGRAM, QD (1 TABLET/DAY)
     Route: 065
  22. CARIPRAZINE [Concomitant]
     Active Substance: CARIPRAZINE
     Indication: Perinatal depression
     Dosage: 1 DOSAGE FORM, QD
     Route: 065
  23. CARIPRAZINE [Concomitant]
     Active Substance: CARIPRAZINE
     Indication: Product used for unknown indication
     Dosage: 1 DOSAGE FORM, QD
     Route: 065

REACTIONS (2)
  - Drug ineffective [Unknown]
  - White blood cell count increased [Unknown]
